FAERS Safety Report 19576728 (Version 22)
Quarter: 2023Q1

REPORT INFORMATION
  Report Type: Spontaneous
  Country: GB (occurrence: GB)
  Receive Date: 20210719
  Receipt Date: 20230329
  Transmission Date: 20230418
  Serious: Yes (Death, Hospitalization, Other)
  Sender: FDA-Public Use
  Company Number: None

PATIENT
  Age: 71 Year
  Sex: Female
  Weight: 54 kg

DRUGS (49)
  1. CARBOPLATIN [Suspect]
     Active Substance: CARBOPLATIN
     Indication: Non-small cell lung cancer
     Route: 065
     Dates: start: 20200729
  2. AMLODIPINE [Suspect]
     Active Substance: AMLODIPINE BESYLATE
     Indication: Hypertension
     Dosage: 1 MILLIGRAM, ONCE A DAY
     Route: 065
  3. CLOPIDOGREL [Suspect]
     Active Substance: CLOPIDOGREL BISULFATE
     Indication: Hypertension
     Dosage: 1 DOSAGE FORM, ONCE A DAY
     Route: 065
  4. ETOPOSIDE [Suspect]
     Active Substance: ETOPOSIDE
     Indication: Non-small cell lung cancer
     Route: 065
     Dates: start: 20200729
  5. AMOXICILLIN [Suspect]
     Active Substance: AMOXICILLIN
     Indication: Product used for unknown indication
     Dosage: 1 DOSAGE FORM, ONCE A DAY
     Dates: start: 20200810, end: 20200816
  6. VORICONAZOLE [Suspect]
     Active Substance: VORICONAZOLE
     Indication: Neutropenic sepsis
     Dosage: 1 DOSAGE FORM, ONCE A DAY
     Dates: start: 20200830
  7. CIPROFLOXACIN HYDROCHLORIDE [Suspect]
     Active Substance: CIPROFLOXACIN HYDROCHLORIDE
     Indication: Prophylaxis
     Route: 065
     Dates: start: 20200827
  8. LINEZOLID [Suspect]
     Active Substance: LINEZOLID
     Indication: Neutropenic sepsis
     Dates: start: 20200830
  9. VENLAFAXINE [Suspect]
     Active Substance: VENLAFAXINE HYDROCHLORIDE
     Indication: Depression
     Route: 065
     Dates: start: 20200820
  10. FLUCONAZOLE [Suspect]
     Active Substance: FLUCONAZOLE
     Indication: Candida infection
     Route: 065
  11. ZOPICLONE [Suspect]
     Active Substance: ZOPICLONE
     Indication: Prophylaxis
     Route: 065
     Dates: start: 20200731
  12. LANSOPRAZOLE [Suspect]
     Active Substance: LANSOPRAZOLE
     Indication: Prophylaxis
     Route: 065
     Dates: start: 20170101
  13. ETOPOSIDE [Suspect]
     Active Substance: ETOPOSIDE
     Indication: Non-small cell lung cancer
     Route: 048
     Dates: start: 20200730
  14. ATEZOLIZUMAB [Suspect]
     Active Substance: ATEZOLIZUMAB
     Indication: Non-small cell lung cancer
     Dosage: INTRAVENOUS DRIP
     Route: 042
     Dates: start: 20200729
  15. CYCLIZINE [Suspect]
     Active Substance: CYCLIZINE
     Indication: Neutropenic sepsis
  16. DEXAMETHASONE [Suspect]
     Active Substance: DEXAMETHASONE
     Indication: Dysphagia
     Dosage: 1 MILLIGRAM, ONCE A DAY
     Dates: start: 20200826
  17. TIOTROPIUM BROMIDE [Suspect]
     Active Substance: TIOTROPIUM BROMIDE
     Indication: Chronic obstructive pulmonary disease
     Dosage: 1 DOSAGE FORM, ONCE A DAY
     Route: 065
  18. BENZYDAMINE [Suspect]
     Active Substance: BENZYDAMINE
     Indication: Prophylaxis
     Dosage: UNK
     Dates: start: 20200819
  19. FORMOTEROL [Suspect]
     Active Substance: FORMOTEROL
     Indication: Hypertension
     Route: 065
     Dates: start: 20200301
  20. LACTULOSE [Suspect]
     Active Substance: LACTULOSE
     Indication: Prophylaxis
     Dosage: 1 DOSAGE FORM, ONCE A DAY
     Route: 065
  21. MORPHINE SULFATE [Suspect]
     Active Substance: MORPHINE SULFATE
     Indication: Pain
     Dosage: UNK
     Dates: start: 20200825
  22. MORPHINE SULFATE [Suspect]
     Active Substance: MORPHINE SULFATE
     Indication: Pain
     Dosage: 1 MILLIGRAM, ONCE A DAY
     Route: 065
     Dates: start: 20200727
  23. ALBUTEROL [Suspect]
     Active Substance: ALBUTEROL
     Indication: Prophylaxis
     Dosage: UNK
     Route: 065
  24. ACETAMINOPHEN\CODEINE PHOSPHATE [Suspect]
     Active Substance: ACETAMINOPHEN\CODEINE PHOSPHATE
     Indication: Pain
     Route: 065
  25. POTASSIUM CHLORIDE, POTASSIUM BICARBONATE [Concomitant]
     Indication: Prophylaxis
     Dosage: UNK, 2X/DAY
     Dates: start: 20200819
  26. PHOSPHORIC ACID SODIUM [Concomitant]
     Indication: Product used for unknown indication
     Dates: start: 20200825
  27. CODEINE PHOSPHATE [Suspect]
     Active Substance: CODEINE PHOSPHATE
     Indication: Pain
     Dosage: 0.5, DAILY
  28. ZOLMITRIPTAN [Suspect]
     Active Substance: ZOLMITRIPTAN
     Indication: Pain
     Dosage: UNK UNK, ONCE A DAY
     Route: 065
  29. MAGNESIUM [Concomitant]
     Active Substance: MAGNESIUM
     Dates: start: 20200819, end: 20200819
  30. METOCLOPRAMIDE [Concomitant]
     Active Substance: METOCLOPRAMIDE
     Indication: Vomiting
     Dosage: 1 DOSAGE FORM, FOUR TIMES/DAY
     Dates: start: 20200819, end: 20200819
  31. UNSPECIFIED INGREDIENT [Concomitant]
     Active Substance: UNSPECIFIED INGREDIENT
     Dosage: 1 DOSAGE FORM
     Dates: start: 20200825, end: 20200825
  32. SANDO-K [Concomitant]
     Dates: start: 20200828, end: 20200901
  33. ONDANSETRON [Concomitant]
     Active Substance: ONDANSETRON
     Indication: Product used for unknown indication
     Dates: start: 20200729, end: 20200729
  34. MORPHINE SULFATE [Suspect]
     Active Substance: MORPHINE SULFATE
     Indication: Prophylaxis
     Dosage: UNK
     Dates: start: 20200731
  35. MORPHINE SULFATE [Suspect]
     Active Substance: MORPHINE SULFATE
     Indication: Pain
     Dosage: UNK
     Dates: start: 20200727
  36. CYCLIZINE [Suspect]
     Active Substance: CYCLIZINE
     Indication: Vomiting
     Dosage: 1 IN 0.25 DAY
     Route: 065
  37. MORPHINE SULFATE [Suspect]
     Active Substance: MORPHINE SULFATE
     Indication: Product used for unknown indication
     Dosage: UNK
     Dates: start: 20200731
  38. ACETAMINOPHEN\CODEINE PHOSPHATE [Suspect]
     Active Substance: ACETAMINOPHEN\CODEINE PHOSPHATE
     Indication: Headache
     Route: 065
  39. CYCLIZINE [Suspect]
     Active Substance: CYCLIZINE
     Indication: Neutropenic sepsis
     Dosage: 0.25
     Route: 065
  40. CYCLIZINE [Suspect]
     Active Substance: CYCLIZINE
     Indication: Product used for unknown indication
     Dosage: 4 MILLIGRAM, ONCE A DAY
     Route: 065
  41. FORMOTEROL [Suspect]
     Active Substance: FORMOTEROL
     Indication: Hypertension
     Dosage: TWO TIMES A DAY
     Route: 065
     Dates: start: 20200301
  42. METOCLOPRAMIDE [Concomitant]
     Active Substance: METOCLOPRAMIDE
     Indication: Hypomagnesaemia
  43. PHOSPHORIC ACID SODIUM [Concomitant]
     Indication: Product used for unknown indication
     Dosage: UNK UNK, FOUR TIMES/DAY
     Dates: start: 20200825, end: 20200825
  44. SANDO-K [Concomitant]
     Indication: Prophylaxis
     Dosage: TWO TIMES A DAY
     Dates: start: 20200819
  45. ATEZOLIZUMAB [Suspect]
     Active Substance: ATEZOLIZUMAB
     Indication: Transitional cell carcinoma
     Dosage: 1200 MG, TIW, INTRAVENOUS DRIP
     Route: 042
     Dates: start: 20200819
  46. ATEZOLIZUMAB [Suspect]
     Active Substance: ATEZOLIZUMAB
     Indication: Small cell lung cancer
     Dosage: INTRAVENOUS DRIP
     Route: 042
  47. ETOPOSIDE [Suspect]
     Active Substance: ETOPOSIDE
     Indication: Small cell lung cancer extensive stage
     Route: 048
     Dates: start: 20200730
  48. DEXAMETHASONE [Suspect]
     Active Substance: DEXAMETHASONE
     Indication: Prophylaxis
  49. ETOPOSIDE [Suspect]
     Active Substance: ETOPOSIDE
     Indication: Product used for unknown indication
     Route: 065
     Dates: start: 20200729

REACTIONS (25)
  - Depression [Not Recovered/Not Resolved]
  - Diarrhoea [Recovered/Resolved]
  - Headache [Not Recovered/Not Resolved]
  - Dyspnoea [Not Recovered/Not Resolved]
  - Dehydration [Not Recovered/Not Resolved]
  - Skin candida [Not Recovered/Not Resolved]
  - Anaemia [Recovered/Resolved]
  - Hypomagnesaemia [Fatal]
  - Mucosal inflammation [Not Recovered/Not Resolved]
  - Productive cough [Not Recovered/Not Resolved]
  - Constipation [Not Recovered/Not Resolved]
  - Mouth ulceration [Recovered/Resolved]
  - Vomiting [Not Recovered/Not Resolved]
  - Hypokalaemia [Recovered/Resolved]
  - Nausea [Recovered/Resolved]
  - Dysphagia [Not Recovered/Not Resolved]
  - Neutropenic sepsis [Not Recovered/Not Resolved]
  - Nervous system disorder [Not Recovered/Not Resolved]
  - Gait disturbance [Unknown]
  - Asthenia [Unknown]
  - Candida infection [Not Recovered/Not Resolved]
  - Decreased appetite [Recovered/Resolved]
  - Neutrophil count decreased [Recovered/Resolved]
  - Balance disorder [Fatal]
  - Product use in unapproved indication [Fatal]

NARRATIVE: CASE EVENT DATE: 20200730
